FAERS Safety Report 10680829 (Version 1)
Quarter: 2014Q4

REPORT INFORMATION
  Report Type: Spontaneous
  Country: IT (occurrence: IT)
  Receive Date: 20141229
  Receipt Date: 20141229
  Transmission Date: 20150529
  Serious: Yes (Hospitalization)
  Sender: FDA-Public Use
  Company Number: IT-TEVA-531298ISR

PATIENT
  Age: 86 Year
  Sex: Male

DRUGS (6)
  1. LASIX [Concomitant]
     Active Substance: FUROSEMIDE
     Indication: PRODUCT USED FOR UNKNOWN INDICATION
  2. CLARITHROMYCIN. [Suspect]
     Active Substance: CLARITHROMYCIN
     Indication: BRONCHITIS
     Dosage: 1 G DAILY
     Route: 048
     Dates: start: 20141215, end: 20141217
  3. ALDACTONE [Concomitant]
     Active Substance: SPIRONOLACTONE
     Indication: PRODUCT USED FOR UNKNOWN INDICATION
  4. MINITRAN - 10 MG/24 ORE CEROTTI TRANSDERMICI [Concomitant]
     Indication: PRODUCT USED FOR UNKNOWN INDICATION
  5. CASODEX - 50 MG COMPRESSE RIVESTITE CON FILM [Concomitant]
     Indication: PRODUCT USED FOR UNKNOWN INDICATION
  6. COUMADIN [Interacting]
     Active Substance: WARFARIN SODIUM
     Indication: PULMONARY EMBOLISM
     Dosage: 1 DF AS NECESSARY
     Route: 048
     Dates: start: 20120101, end: 20141217

REACTIONS (4)
  - Epistaxis [Recovering/Resolving]
  - Drug interaction [Recovering/Resolving]
  - Hypocoagulable state [Recovering/Resolving]
  - Gingival bleeding [Recovering/Resolving]

NARRATIVE: CASE EVENT DATE: 20141217
